FAERS Safety Report 26215913 (Version 1)
Quarter: 2025Q4

REPORT INFORMATION
  Report Type: Spontaneous
  Country: EU (occurrence: EU)
  Receive Date: 20251231
  Receipt Date: 20251231
  Transmission Date: 20260119
  Serious: Yes (Life-Threatening, Other)
  Sender: ABBVIE
  Company Number: None

PATIENT
  Age: 61 Year
  Sex: Male
  Weight: 83 kg

DRUGS (1)
  1. RINVOQ [Suspect]
     Active Substance: UPADACITINIB
     Indication: Dermatitis atopic
     Dosage: FORM STRENGTH- 30 MILLIGRAM
     Route: 048
     Dates: start: 20241212, end: 20251219

REACTIONS (1)
  - Mesenteric artery thrombosis [Unknown]

NARRATIVE: CASE EVENT DATE: 20251016
